FAERS Safety Report 6196999-6 (Version None)
Quarter: 2009Q2

REPORT INFORMATION
  Report Type: 
  Country: None (occurrence: None)
  Receive Date: 20090520
  Receipt Date: 20090512
  Transmission Date: 20091009
  Serious: Yes (Death)
  Sender: FDA-Public Use
  Company Number: DE-PFIZER INC-2009201532

PATIENT
  Age: 40 Year

DRUGS (5)
  1. DOXEPIN HCL [Suspect]
     Dosage: 500 MG, SINGLE
     Route: 048
  2. PARACETAMOL [Suspect]
     Dosage: 56 G, SINGLE
     Route: 048
  3. CLEXANE [Suspect]
     Dosage: 4960 MG, SINGLE
  4. BROMAZANIL [Suspect]
     Dosage: 180 MG, UNK
  5. CARBON MONOXIDE [Suspect]

REACTIONS (11)
  - ACUTE RESPIRATORY DISTRESS SYNDROME [None]
  - COMPLETED SUICIDE [None]
  - DISSEMINATED INTRAVASCULAR COAGULATION [None]
  - HAEMORRHAGE [None]
  - HEPATIC FAILURE [None]
  - INTENTIONAL OVERDOSE [None]
  - LOSS OF CONSCIOUSNESS [None]
  - MULTI-ORGAN FAILURE [None]
  - MYDRIASIS [None]
  - RENAL FAILURE [None]
  - THERAPEUTIC AGENT TOXICITY [None]
